FAERS Safety Report 15634234 (Version 1)
Quarter: 2018Q4

REPORT INFORMATION
  Report Type: Spontaneous
  Country: US (occurrence: US)
  Receive Date: 20181119
  Receipt Date: 20181119
  Transmission Date: 20190205
  Serious: No
  Sender: FDA-Public Use
  Company Number: US-PFIZER INC-2018467408

PATIENT
  Age: 73 Year
  Sex: Female

DRUGS (1)
  1. IBRANCE [Suspect]
     Active Substance: PALBOCICLIB
     Indication: BONE CANCER
     Dosage: 1 DF, CYCLIC (ONE TABLET A DAY FOR 21 DAYS AND THEN OFF FOR 7 DAYS)
     Dates: start: 201811, end: 201811

REACTIONS (7)
  - Asthenia [Unknown]
  - Feeding disorder [Unknown]
  - Malaise [Recovering/Resolving]
  - Abdominal distension [Unknown]
  - Product use in unapproved indication [Unknown]
  - Epistaxis [Unknown]
  - Vomiting [Unknown]

NARRATIVE: CASE EVENT DATE: 201811
